FAERS Safety Report 19174771 (Version 2)
Quarter: 2021Q2

REPORT INFORMATION
  Report Type: Report from Study
  Country: IT (occurrence: IT)
  Receive Date: 20210423
  Receipt Date: 20210507
  Transmission Date: 20210717
  Serious: Yes (Other)
  Sender: FDA-Public Use
  Company Number: IT-JNJFOC-20210428590

PATIENT
  Age: 61 Year
  Sex: Female
  Weight: 70 kg

DRUGS (3)
  1. DARZALEX [Suspect]
     Active Substance: DARATUMUMAB
     Dosage: THE LAST THERAPY WAS ADMINISTERED ON 8?APR?2021 DAY 15 C5 WITH IV DARATUMUMAB 1000 MG.
     Route: 042
     Dates: start: 20210324
  2. DARZALEX [Suspect]
     Active Substance: DARATUMUMAB
     Dosage: DAY15 C1 WITH IV DARATUMUMAB 1000 MG ON 07?DEC?2020, DAY22 C1 ON 15?DEC, DAY1C2 ON 21? DEC?2020, DAY
     Route: 042
     Dates: start: 20201124, end: 20201130
  3. DARZALEX [Suspect]
     Active Substance: DARATUMUMAB
     Indication: LIGHT CHAIN DISEASE
     Route: 042
     Dates: start: 20201123

REACTIONS (2)
  - Renal cyst [Unknown]
  - Urinary tract infection [Unknown]

NARRATIVE: CASE EVENT DATE: 20210107
